FAERS Safety Report 9134031 (Version 1)
Quarter: 2013Q1

REPORT INFORMATION
  Report Type: Spontaneous
  Country: US (occurrence: US)
  Receive Date: 20130304
  Receipt Date: 20130304
  Transmission Date: 20140127
  Serious: No
  Sender: FDA-Public Use
  Company Number: US-009507513-1303USA000084

PATIENT
  Sex: Female

DRUGS (1)
  1. NASONEX [Suspect]
     Dosage: 2 DF, QD (ONE SPRAY IN EACH NOSTRIL)
     Route: 045

REACTIONS (3)
  - Impetigo [Unknown]
  - Nasal ulcer [Unknown]
  - Inappropriate schedule of drug administration [Unknown]
